FAERS Safety Report 7949346-0 (Version None)
Quarter: 2011Q4

REPORT INFORMATION
  Report Type: 
  Country: None (occurrence: None)
  Receive Date: 20111130
  Receipt Date: 20111122
  Transmission Date: 20120403
  Serious: Yes (Hospitalization)
  Sender: FDA-Public Use
  Company Number: US-GLAXOSMITHKLINE-A0733244A

PATIENT
  Age: 48 Year
  Sex: Male

DRUGS (5)
  1. AVANDAMET [Suspect]
     Indication: DIABETES MELLITUS
     Route: 048
     Dates: start: 20050101, end: 20070801
  2. GLYBURIDE [Concomitant]
  3. METFORMIN HCL [Concomitant]
     Dates: end: 20060701
  4. AVANDIA [Suspect]
     Indication: DIABETES MELLITUS
     Dosage: 4MG PER DAY
     Route: 048
     Dates: start: 20031101, end: 20060701
  5. LOTREL [Concomitant]

REACTIONS (2)
  - MYOCARDIAL INFARCTION [None]
  - PANCREATITIS [None]
